FAERS Safety Report 6084234-9 (Version None)
Quarter: 2009Q1

REPORT INFORMATION
  Report Type: 
  Country: None (occurrence: None)
  Receive Date: 20090219
  Receipt Date: 20080811
  Transmission Date: 20090719
  Serious: Yes (Death)
  Sender: FDA-Public Use
  Company Number: FR-ROCHE-580602

PATIENT
  Sex: Male

DRUGS (11)
  1. ROCEPHIN [Suspect]
     Dosage: FORM: INJECTABLE SOLUTION
     Route: 042
     Dates: start: 20080502, end: 20080504
  2. ALLOPURINOL [Suspect]
     Indication: GOUT
     Route: 048
     Dates: start: 20080202, end: 20080502
  3. MOPRAL [Concomitant]
     Dosage: INTRODUCED BEFORE JANUARY 2008
  4. EPREX [Concomitant]
     Dosage: INTRODUCED BEFORE JANUARY 2008
     Route: 042
     Dates: end: 20080201
  5. EPREX [Concomitant]
     Dosage: DOSE: 4000 UI/ML, DOSE FORM: INJECTABLE SOLUTION.
     Route: 042
     Dates: start: 20080201
  6. LOXEN [Concomitant]
     Dosage: INTRODUCED BEFORE JANUARY 2008, DOSE FORM: PROLONG RELEASE CAPSULE.
     Route: 048
  7. PLAVIX [Concomitant]
     Dosage: INTRODUCED BEFORE JANUARY 2008, DOSE FORM: FILM-COATED TABLET.
     Route: 048
  8. COLCHIMAX [Concomitant]
     Route: 048
     Dates: start: 20080124, end: 20080205
  9. COLCHIMAX [Concomitant]
     Route: 048
     Dates: start: 20080202, end: 20080507
  10. RILMENIDINE [Concomitant]
     Route: 048
  11. FUROSEMIDE [Concomitant]
     Route: 048

REACTIONS (1)
  - STEVENS-JOHNSON SYNDROME [None]
